FAERS Safety Report 11488503 (Version 1)
Quarter: 2015Q3

REPORT INFORMATION
  Report Type: Spontaneous
  Country: US (occurrence: US)
  Receive Date: 20150910
  Receipt Date: 20150910
  Transmission Date: 20151125
  Serious: No
  Sender: FDA-Public Use
  Company Number: US-ROCHE-1535200

PATIENT
  Age: 44 Year
  Sex: Female

DRUGS (5)
  1. SILIBININ [Suspect]
     Active Substance: SILIBININ
     Indication: HEPATITIS C
     Dosage: 20 MG/KG/DAY
     Route: 065
  2. SILIBININ [Suspect]
     Active Substance: SILIBININ
     Dosage: 23MG/KG/DAY
     Route: 065
  3. PEG-INTERFERON ALFA 2A [Suspect]
     Active Substance: PEGINTERFERON ALFA-2A
     Indication: HEPATITIS C
     Route: 065
  4. RIBAVIRIN. [Suspect]
     Active Substance: RIBAVIRIN
     Route: 065
  5. RIBAVIRIN. [Suspect]
     Active Substance: RIBAVIRIN
     Indication: HEPATITIS C
     Route: 065

REACTIONS (4)
  - Haemoglobin decreased [Unknown]
  - Mental disorder [Unknown]
  - Feeling hot [Unknown]
  - Eosinophilia [Unknown]
